FAERS Safety Report 9996235 (Version 2)
Quarter: 2014Q2

REPORT INFORMATION
  Report Type: Spontaneous
  Country: BE (occurrence: BE)
  Receive Date: 20140311
  Receipt Date: 20140507
  Transmission Date: 20141212
  Serious: Yes (Hospitalization)
  Sender: FDA-Public Use
  Company Number: BE-B.I. PHARMACEUTICALS,INC./RIDGEFIELD-2014-BI-09761BL

PATIENT
  Age: 69 Year
  Sex: Female
  Weight: 65 kg

DRUGS (2)
  1. PRADAXA [Suspect]
     Indication: ATRIAL FIBRILLATION
     Dosage: 300 MG
     Route: 048
     Dates: start: 20120829, end: 20140223
  2. PRADAXA [Suspect]
     Route: 048
     Dates: start: 20140223

REACTIONS (4)
  - Pyelonephritis [Recovered/Resolved]
  - Creatinine renal clearance decreased [Recovered/Resolved]
  - Renal failure acute [Recovered/Resolved]
  - Abdominal wall haematoma [Recovered/Resolved]
